FAERS Safety Report 22067777 (Version 1)
Quarter: 2023Q1

REPORT INFORMATION
  Report Type: Spontaneous
  Country: GB (occurrence: GB)
  Receive Date: 20230307
  Receipt Date: 20230307
  Transmission Date: 20230418
  Serious: Yes (Other)
  Sender: FDA-Public Use
  Company Number: GB-MHRA-MED-202302242127225790-JPKHC

PATIENT
  Age: 28 Year
  Sex: Female

DRUGS (4)
  1. LIRAGLUTIDE [Suspect]
     Active Substance: LIRAGLUTIDE
     Indication: Weight control
     Dosage: 0.6 MG, QD
     Dates: start: 20230129
  2. LIRAGLUTIDE [Suspect]
     Active Substance: LIRAGLUTIDE
     Dosage: 1.2 MG, QD (NIGHT)
     Dates: end: 20230223
  3. LIRAGLUTIDE [Suspect]
     Active Substance: LIRAGLUTIDE
     Dosage: 0.6 MG, QD
  4. LIRAGLUTIDE [Suspect]
     Active Substance: LIRAGLUTIDE
     Dosage: 1.2 MG, QD (NIGHT)

REACTIONS (12)
  - Anal incontinence [Not Recovered/Not Resolved]
  - Heavy menstrual bleeding [Recovering/Resolving]
  - Renal pain [Recovering/Resolving]
  - Dry mouth [Recovering/Resolving]
  - Hypoglycaemia [Recovering/Resolving]
  - Nausea [Not Recovered/Not Resolved]
  - Fatigue [Not Recovered/Not Resolved]
  - Eructation [Recovering/Resolving]
  - Abdominal distension [Not Recovered/Not Resolved]
  - Gastritis [Recovering/Resolving]
  - Abdominal pain upper [Recovering/Resolving]
  - Headache [Recovering/Resolving]
